FAERS Safety Report 7064855-7 (Version None)
Quarter: 2010Q4

REPORT INFORMATION
  Report Type: 
  Country: None (occurrence: None)
  Receive Date: 20101027
  Receipt Date: 19891120
  Transmission Date: 20110411
  Serious: Yes (Death, Life-Threatening, Hospitalization)
  Sender: FDA-Public Use
  Company Number: US-ROCHE-890201100001

PATIENT
  Age: 33 Year
  Sex: Female
  Weight: 63.5 kg

DRUGS (2)
  1. INTERFERON ALFA-2A [Suspect]
     Indication: LYMPHOMA
     Route: 065
     Dates: start: 19891102, end: 19891108
  2. INTERFERON ALFA-2A [Suspect]
     Route: 065
     Dates: start: 19891109, end: 19891118

REACTIONS (3)
  - HYPERCALCAEMIA [None]
  - MALIGNANT NEOPLASM PROGRESSION [None]
  - PANCREATITIS [None]
